FAERS Safety Report 9232330 (Version 2)
Quarter: 2013Q2

REPORT INFORMATION
  Report Type: Spontaneous
  Country: IT (occurrence: IT)
  Receive Date: 20130416
  Receipt Date: 20130608
  Transmission Date: 20140414
  Serious: Yes (Other)
  Sender: FDA-Public Use
  Company Number: IT-009507513-1304ITA006526

PATIENT
  Age: 73 Year
  Sex: Female

DRUGS (1)
  1. FOSAVANCE [Suspect]
     Indication: OSTEOPOROSIS
     Dosage: 1 DF, QW
     Route: 048
     Dates: start: 20000101, end: 20110101

REACTIONS (2)
  - Fistula [Unknown]
  - Osteonecrosis of jaw [Unknown]
